FAERS Safety Report 18239179 (Version 1)
Quarter: 2020Q3

REPORT INFORMATION
  Report Type: Spontaneous
  Country: FR (occurrence: FR)
  Receive Date: 20200907
  Receipt Date: 20200907
  Transmission Date: 20201103
  Serious: Yes (Hospitalization)
  Sender: FDA-Public Use
  Company Number: NVSC2020FR240843

PATIENT
  Age: 53 Year
  Sex: Male
  Weight: 77 kg

DRUGS (5)
  1. APROKAM [Suspect]
     Active Substance: CEFUROXIME SODIUM
     Indication: ANTIBIOTIC PROPHYLAXIS
     Dosage: 1 DF (1 INJECTION)
     Route: 047
     Dates: start: 20200728, end: 20200728
  2. DEXAFREE [Suspect]
     Active Substance: DEXAMETHASONE SODIUM PHOSPHATE
     Indication: CATARACT OPERATION
     Dosage: 3 DRP
     Route: 047
     Dates: start: 20200728
  3. INDOCOLLYRE [Suspect]
     Active Substance: INDOMETHACIN
     Indication: CATARACT OPERATION
     Dosage: 3 DRP (1 GOUTTE 3X/JOUR)
     Route: 047
     Dates: start: 20200728
  4. MYDRIATICUM [Suspect]
     Active Substance: TROPICAMIDE
     Indication: CATARACT OPERATION
     Dosage: 1 DRP (1 GOUTTE/JOUR)
     Route: 047
     Dates: start: 20200728, end: 20200805
  5. AZYTER [Suspect]
     Active Substance: AZITHROMYCIN ANHYDROUS
     Indication: CATARACT OPERATION
     Dosage: 2 DRP (1 GOUTTE X2/JOUR)
     Route: 047
     Dates: start: 20200728

REACTIONS (2)
  - Endophthalmitis [Not Recovered/Not Resolved]
  - Eye ulcer [Not Recovered/Not Resolved]

NARRATIVE: CASE EVENT DATE: 20200729
